FAERS Safety Report 17454200 (Version 1)
Quarter: 2020Q1

REPORT INFORMATION
  Report Type: Spontaneous
  Country: US (occurrence: US)
  Receive Date: 20200224
  Receipt Date: 20200224
  Transmission Date: 20200409
  Serious: Yes (Hospitalization)
  Sender: FDA-Public Use
  Company Number: None

PATIENT
  Sex: Female

DRUGS (7)
  1. MOXIFLOXACIN. [Concomitant]
     Active Substance: MOXIFLOXACIN
  2. TEMOZOLOMIDE. [Suspect]
     Active Substance: TEMOZOLOMIDE
     Indication: PRODUCT USED FOR UNKNOWN INDICATION
     Dosage: ?          OTHER FREQUENCY:QDX5D EVERY 28DAYS;?
     Route: 048
     Dates: start: 20191121
  3. LISINOPRIL. [Concomitant]
     Active Substance: LISINOPRIL
  4. ONDANSETRON [Concomitant]
     Active Substance: ONDANSETRON
  5. TEMOZOLOMIDE. [Suspect]
     Active Substance: TEMOZOLOMIDE
     Indication: PRODUCT USED FOR UNKNOWN INDICATION
     Dosage: ?          OTHER FREQUENCY:QDX5D EVERY 28DAYS;?
     Route: 048
     Dates: start: 20191121
  6. IBUPROFEN. [Concomitant]
     Active Substance: IBUPROFEN
  7. OXCARBAZEPIN [Concomitant]
     Active Substance: OXCARBAZEPINE

REACTIONS (2)
  - Insurance issue [None]
  - Therapy cessation [None]
